FAERS Safety Report 9757177 (Version 3)
Quarter: 2014Q1

REPORT INFORMATION
  Report Type: Report from Study
  Country: US (occurrence: US)
  Receive Date: 20131213
  Receipt Date: 20140328
  Transmission Date: 20141002
  Serious: Yes (Other)
  Sender: FDA-Public Use
  Company Number: US-BAXTER-2013BAX049391

PATIENT
  Age: 58 Year
  Sex: Female
  Weight: 65.32 kg

DRUGS (13)
  1. GAMMAGARD S/D [Suspect]
     Indication: IMMUNODEFICIENCY COMMON VARIABLE
     Dosage: 700 ML TOTAL; MAXIMUM INFUSION SPEED 250 ML/HR
     Route: 042
     Dates: start: 20131113, end: 20131113
  2. DOXYCYCLINE [Concomitant]
     Indication: UPPER RESPIRATORY TRACT INFECTION
     Route: 048
  3. FLUTICASONE [Concomitant]
     Indication: CHRONIC OBSTRUCTIVE PULMONARY DISEASE
     Dosage: 2 PUFFS IF NEEDED
     Route: 055
  4. VITAMIN D [Concomitant]
     Indication: OSTEOPOROSIS
     Route: 048
     Dates: start: 20120404
  5. OXYCODONE [Concomitant]
     Indication: FIBROMYALGIA
     Route: 048
     Dates: start: 20120731
  6. CITALOPRAM [Concomitant]
     Indication: DEPRESSION
     Route: 048
     Dates: start: 20120726
  7. LORAZEPAM [Concomitant]
     Indication: ANXIETY
     Route: 048
     Dates: start: 20120612
  8. LORAZEPAM [Concomitant]
     Indication: PREMEDICATION
     Dosage: AS REQUIRED PRIOR TO GAMMAGARD S/D INFUSIONS
     Route: 042
     Dates: start: 20031119
  9. TRAZODONE [Concomitant]
     Indication: INSOMNIA
     Route: 048
     Dates: start: 20120726
  10. ALBUTEROL [Concomitant]
     Indication: CHRONIC OBSTRUCTIVE PULMONARY DISEASE
     Dosage: 2 PUFFS IF NEEDED
     Route: 055
  11. METHYLPREDNISOLONE [Concomitant]
     Indication: PREMEDICATION
     Dosage: AS REQUIRED PRIOR TO GAMMAGARD S/D INFUSIONS
     Route: 042
  12. DIPHENHYDRAMINE [Concomitant]
     Indication: PREMEDICATION
     Dosage: AS REQUIRED PRIOR TO GAMMAGARD S/D INFUSIONS
     Route: 042
     Dates: start: 20031119
  13. ACETAMINOPHEN [Concomitant]
     Indication: PREMEDICATION
     Dosage: PRIOR TO GAMMAGARD S/D INFUSIONS
     Route: 042
     Dates: start: 20031119

REACTIONS (4)
  - Gait disturbance [Recovered/Resolved]
  - Balance disorder [Recovered/Resolved]
  - Fatigue [Recovered/Resolved]
  - Speech disorder [Recovered/Resolved]
